FAERS Safety Report 5644115-9 (Version None)
Quarter: 2008Q1

REPORT INFORMATION
  Report Type: 
  Country: None (occurrence: None)
  Receive Date: 20080226
  Receipt Date: 20080218
  Transmission Date: 20080703
  Serious: Yes (Other)
  Sender: FDA-Public Use
  Company Number: D0056189A

PATIENT
  Sex: 0

DRUGS (3)
  1. ARIXTRA [Suspect]
     Dosage: 2,5 MG / SINGLE DOSE / SUBCUTANEOUS
     Route: 058
  2. TIROFIBAN HYDROCHLORIDE [Concomitant]
  3. HEPARIN [Concomitant]

REACTIONS (1)
  - CORONARY ARTERY OCCLUSION [None]
